FAERS Safety Report 24562956 (Version 1)
Quarter: 2024Q4

REPORT INFORMATION
  Report Type: Spontaneous
  Country: BG (occurrence: BG)
  Receive Date: 20241030
  Receipt Date: 20241030
  Transmission Date: 20250114
  Serious: Yes (Other)
  Sender: VIIV
  Company Number: BG-VIIV HEALTHCARE-BG2024EME129591

PATIENT

DRUGS (1)
  1. DOVATO [Suspect]
     Active Substance: DOLUTEGRAVIR SODIUM\LAMIVUDINE
     Indication: HIV infection
     Dosage: UNK

REACTIONS (7)
  - Cervix carcinoma [Recovering/Resolving]
  - Vulval cancer [Recovering/Resolving]
  - CD4 lymphocytes decreased [Recovering/Resolving]
  - CD4/CD8 ratio decreased [Recovering/Resolving]
  - Pelvic pain [Recovering/Resolving]
  - Vaginal haemorrhage [Recovering/Resolving]
  - Vaginal discharge [Recovering/Resolving]

NARRATIVE: CASE EVENT DATE: 20240701
